FAERS Safety Report 19736814 (Version 2)
Quarter: 2021Q3

REPORT INFORMATION
  Report Type: Spontaneous
  Country: US (occurrence: US)
  Receive Date: 20210823
  Receipt Date: 20210910
  Transmission Date: 20211014
  Serious: No
  Sender: FDA-Public Use
  Company Number: US-BAUSCH-BL-2021-025756

PATIENT
  Age: 79 Year
  Sex: Female
  Weight: 60.84 kg

DRUGS (2)
  1. RETIN?A MICRO [Suspect]
     Active Substance: TRETINOIN
     Indication: DERMATITIS ACNEIFORM
     Route: 061
     Dates: start: 20210712
  2. MOISTURIZER [Concomitant]
     Active Substance: UNSPECIFIED INGREDIENT
     Indication: BURNING SENSATION
     Route: 061

REACTIONS (4)
  - Skin burning sensation [Recovered/Resolved]
  - Product physical consistency issue [Unknown]
  - Skin exfoliation [Unknown]
  - Dry skin [Unknown]

NARRATIVE: CASE EVENT DATE: 202107
